FAERS Safety Report 16739032 (Version 1)
Quarter: 2019Q3

REPORT INFORMATION
  Report Type: Spontaneous
  Country: US (occurrence: US)
  Receive Date: 20190708
  Receipt Date: 20190708
  Transmission Date: 20191005
  Serious: Yes (Hospitalization)
  Sender: FDA-Public Use
  Company Number: None

PATIENT
  Age: 58 Year
  Sex: Male
  Weight: 105.23 kg

DRUGS (2)
  1. CLOPIDOGREL [Suspect]
     Active Substance: CLOPIDOGREL BISULFATE
     Indication: CARDIAC OPERATION
     Route: 048
     Dates: start: 20060101
  2. WARFARIN [Suspect]
     Active Substance: WARFARIN
     Indication: ATRIAL FIBRILLATION
     Route: 048
     Dates: start: 20180829, end: 20190107

REACTIONS (3)
  - Gastric haemorrhage [None]
  - Anaemia [None]
  - Haemorrhage [None]

NARRATIVE: CASE EVENT DATE: 20190107
